FAERS Safety Report 8915462 (Version 4)
Quarter: 2013Q1

REPORT INFORMATION
  Report Type: Report from Study
  Country: US (occurrence: US)
  Receive Date: 20121119
  Receipt Date: 20130225
  Transmission Date: 20140127
  Serious: Yes (Other)
  Sender: FDA-Public Use
  Company Number: US-JNJFOC-20121014341

PATIENT
  Sex: Male

DRUGS (2)
  1. REMICADE [Suspect]
     Indication: COLITIS ULCERATIVE
     Route: 042
  2. ALL OTHER THERAPEUTICS [Concomitant]
     Indication: SCAR
     Route: 065

REACTIONS (3)
  - Dyspnoea [Recovering/Resolving]
  - Surgery [Unknown]
  - Drug ineffective [Not Recovered/Not Resolved]
